FAERS Safety Report 9831486 (Version 1)
Quarter: 2014Q1

REPORT INFORMATION
  Report Type: Spontaneous
  Country: US (occurrence: US)
  Receive Date: 20140121
  Receipt Date: 20140121
  Transmission Date: 20141002
  Serious: Yes (Death)
  Sender: FDA-Public Use
  Company Number: US-JNJFOC-20140110556

PATIENT
  Age: 55 Year
  Sex: Male

DRUGS (5)
  1. SALICYLATE [Suspect]
     Indication: SUICIDE ATTEMPT
     Route: 065
  2. VILAZODONE [Suspect]
     Indication: SUICIDE ATTEMPT
     Route: 065
  3. ALPRAZOLAM [Suspect]
     Indication: SUICIDE ATTEMPT
     Route: 065
  4. ESCITALOPRAM [Suspect]
     Indication: SUICIDE ATTEMPT
     Route: 065
  5. DULOXETINE [Suspect]
     Indication: SUICIDE ATTEMPT
     Route: 065

REACTIONS (7)
  - Overdose [Fatal]
  - Completed suicide [Fatal]
  - Hyperthermia [Unknown]
  - Arrhythmia [Unknown]
  - Hypotension [Unknown]
  - Bradycardia [Unknown]
  - Ventricular tachycardia [Unknown]
